FAERS Safety Report 4971040-9 (Version None)
Quarter: 2006Q2

REPORT INFORMATION
  Report Type: 
  Country: None (occurrence: None)
  Receive Date: 20060412
  Receipt Date: 20060410
  Transmission Date: 20061013
  Serious: Yes (Hospitalization)
  Sender: FDA-Public Use
  Company Number: US-JNJFOC-20060305894

PATIENT
  Sex: Female

DRUGS (1)
  1. ARESTIN [Suspect]
     Indication: PERIODONTITIS

REACTIONS (5)
  - BLEEDING TIME PROLONGED [None]
  - CONTUSION [None]
  - INTERNATIONAL NORMALISED RATIO INCREASED [None]
  - PLATELET COUNT DECREASED [None]
  - TONGUE DISORDER [None]
